FAERS Safety Report 8585139-1 (Version None)
Quarter: 2012Q3

REPORT INFORMATION
  Report Type: 
  Country: None (occurrence: None)
  Receive Date: 20120810
  Receipt Date: 20120806
  Transmission Date: 20120928
  Serious: Yes (Hospitalization, Other)
  Sender: FDA-Public Use
  Company Number: PHHY2012TW068692

PATIENT
  Sex: Female

DRUGS (2)
  1. ZOLEDRONOC ACID [Suspect]
     Indication: OSTEOPOROSIS
     Dosage: 5 MG PER 100 ML
     Route: 042
     Dates: start: 20120717
  2. CINNARIZINE [Concomitant]
     Dosage: 1 DF, BID

REACTIONS (7)
  - PYREXIA [None]
  - HEADACHE [None]
  - VISUAL IMPAIRMENT [None]
  - INFLAMMATION [None]
  - HEARING IMPAIRED [None]
  - ABDOMINAL PAIN UPPER [None]
  - TINNITUS [None]
